FAERS Safety Report 8538700-4 (Version None)
Quarter: 2012Q3

REPORT INFORMATION
  Report Type: 
  Country: None (occurrence: None)
  Receive Date: 20120718
  Receipt Date: 20120718
  Transmission Date: 20120928
  Serious: No
  Sender: FDA-Public Use
  Company Number: None

PATIENT
  Age: 46 Year
  Sex: Male

DRUGS (4)
  1. DEPAKOTE [Concomitant]
  2. CLONOPIN [Concomitant]
  3. PROVIGIL [Suspect]
     Dosage: 100 MGM ORAL  SEVERAL MONTHS
     Route: 048
     Dates: start: 20111001
  4. ATIVAN [Concomitant]

REACTIONS (3)
  - GINGIVAL PAIN [None]
  - GINGIVAL DISORDER [None]
  - GINGIVAL SWELLING [None]
